FAERS Safety Report 9380248 (Version 2)
Quarter: 2014Q2

REPORT INFORMATION
  Report Type: Spontaneous
  Country: US (occurrence: US)
  Receive Date: 20130702
  Receipt Date: 20140424
  Transmission Date: 20141212
  Serious: Yes (Death, Hospitalization)
  Sender: FDA-Public Use
  Company Number: US-B.I. PHARMACEUTICALS,INC./RIDGEFIELD-2013-BI-18602BP

PATIENT
  Age: 69 Year
  Sex: Female
  Weight: 68.04 kg

DRUGS (20)
  1. PRADAXA [Suspect]
     Indication: ATRIAL FIBRILLATION
     Dosage: 300 MG
     Route: 048
     Dates: start: 20111222, end: 20120306
  2. FOLVITE [Concomitant]
     Dosage: 1 MG
     Route: 048
  3. PERCOCET [Concomitant]
     Route: 048
  4. COLACE [Concomitant]
     Route: 048
  5. MIRALAX [Concomitant]
     Dosage: 17 G
     Route: 048
  6. PHENERGAN [Concomitant]
     Route: 048
  7. TYLENOL [Concomitant]
     Route: 048
  8. ASPIRIN [Concomitant]
     Dosage: 81 MG
     Route: 048
  9. METHOTREXATE [Concomitant]
     Dosage: 0.3571 MG
     Route: 048
  10. CARDIZEM CD [Concomitant]
     Dosage: 180 MG
     Route: 048
  11. NITROSTAT [Concomitant]
     Indication: CHEST PAIN
     Route: 060
  12. GLUCOPHAGE [Concomitant]
     Dosage: 500 MG
     Route: 048
  13. DELTASONE [Concomitant]
     Dosage: 5 MG
     Route: 048
  14. PRILOSEC [Concomitant]
     Dosage: 20 MG
     Route: 048
  15. SINGULAIR [Concomitant]
     Dosage: 10 MG
     Route: 048
  16. CYMBALTA [Concomitant]
     Dosage: 30 MG
     Route: 048
  17. ARICEPT [Concomitant]
     Dosage: 5 MG
     Route: 048
  18. DETROL LA [Concomitant]
     Dosage: 2 MG
     Route: 048
  19. ZOCOR [Concomitant]
     Dosage: 2 MG
     Route: 048
  20. ATIVAN [Concomitant]
     Dosage: 1 MG
     Route: 048

REACTIONS (5)
  - Haemorrhagic stroke [Fatal]
  - Haemorrhage intracranial [Fatal]
  - Anaemia [Unknown]
  - Coagulopathy [Unknown]
  - Contusion [Unknown]
